FAERS Safety Report 22371164 (Version 1)
Quarter: 2023Q2

REPORT INFORMATION
  Report Type: Spontaneous
  Country: US (occurrence: US)
  Receive Date: 20230526
  Receipt Date: 20230526
  Transmission Date: 20230721
  Serious: Yes (Other)
  Sender: FDA-Public Use
  Company Number: US-CIPLA LTD.-2023US02810

PATIENT

DRUGS (1)
  1. ESCITALOPRAM [Suspect]
     Active Substance: ESCITALOPRAM OXALATE
     Dosage: 1780 MILLIGRAM, UNK
     Route: 065

REACTIONS (11)
  - Electrocardiogram QRS complex prolonged [Recovered/Resolved]
  - Electrocardiogram QT prolonged [Recovered/Resolved]
  - Bundle branch block right [Recovering/Resolving]
  - Hypertonia [Recovering/Resolving]
  - Tachycardia [Recovering/Resolving]
  - Mydriasis [Recovering/Resolving]
  - Tremor [Recovering/Resolving]
  - Clonus [Recovering/Resolving]
  - Hyperreflexia [Recovering/Resolving]
  - Anxiety [Recovering/Resolving]
  - Intentional overdose [Unknown]
